FAERS Safety Report 16705814 (Version 1)
Quarter: 2019Q3

REPORT INFORMATION
  Report Type: Spontaneous
  Country: US (occurrence: US)
  Receive Date: 20190628
  Receipt Date: 20190628
  Transmission Date: 20191004
  Serious: No
  Sender: FDA-Public Use
  Company Number: None

PATIENT
  Age: 31 Year
  Sex: Female

DRUGS (1)
  1. HUMIRA [Suspect]
     Active Substance: ADALIMUMAB
     Indication: CROHN^S DISEASE
     Dosage: ?          OTHER DOSE:40/0.4 MG/ML;?
     Dates: start: 20190626, end: 20190626

REACTIONS (3)
  - Injection site haemorrhage [None]
  - Product dose omission [None]
  - Device defective [None]

NARRATIVE: CASE EVENT DATE: 20190626
